FAERS Safety Report 7503651-0 (Version None)
Quarter: 2011Q2

REPORT INFORMATION
  Report Type: 
  Country: None (occurrence: None)
  Receive Date: 20110518
  Receipt Date: 20110505
  Transmission Date: 20111010
  Serious: Yes (Other)
  Sender: FDA-Public Use
  Company Number: 2011MA005812

PATIENT
  Age: 74 Year
  Sex: Female

DRUGS (7)
  1. D-PENICILLAMINE [Concomitant]
  2. DIHYDROCODEINE BITARTRATE INJ [Concomitant]
  3. LANSOPRAZOLE [Concomitant]
  4. GABAPENTIN [Suspect]
     Indication: RESTLESS LEGS SYNDROME
     Dosage: 100 MG;HS;PO
     Route: 048
     Dates: start: 20110404, end: 20110409
  5. FLUOXETINE HCL [Concomitant]
  6. RISEDRONIC ACID [Concomitant]
  7. ACETAMINOPHEN [Concomitant]

REACTIONS (5)
  - FATIGUE [None]
  - CARDIAC FAILURE CONGESTIVE [None]
  - JOINT SWELLING [None]
  - NOCTURNAL DYSPNOEA [None]
  - ATRIAL FIBRILLATION [None]
